FAERS Safety Report 14693124 (Version 8)
Quarter: 2020Q1

REPORT INFORMATION
  Report Type: Spontaneous
  Country: CY (occurrence: CY)
  Receive Date: 20180329
  Receipt Date: 20200122
  Transmission Date: 20200409
  Serious: Yes (Life-Threatening, Other)
  Sender: FDA-Public Use
  Company Number: CY-BAYER-2018-058766

PATIENT
  Age: 70 Year
  Sex: Female

DRUGS (1)
  1. CIPROXIN 500 MG [Suspect]
     Active Substance: CIPROFLOXACIN
     Indication: URINARY TRACT INFECTION
     Dosage: 500 MG, BID
     Route: 048
     Dates: start: 201611, end: 2016

REACTIONS (52)
  - Pyrexia [Not Recovered/Not Resolved]
  - Insomnia [Not Recovered/Not Resolved]
  - Hypoaesthesia [None]
  - Arthralgia [None]
  - Depression [None]
  - Weight decreased [None]
  - Allergy to chemicals [Not Recovered/Not Resolved]
  - General physical health deterioration [Not Recovered/Not Resolved]
  - Blister [None]
  - Hypersensitivity [None]
  - Photosensitivity reaction [Not Recovered/Not Resolved]
  - Intestinal polyp [None]
  - Hypersensitivity [None]
  - Gastrointestinal polyp haemorrhage [None]
  - Dupuytren^s contracture [None]
  - Suicide attempt [Recovered/Resolved]
  - Skin burning sensation [Not Recovered/Not Resolved]
  - Pruritus [Not Recovered/Not Resolved]
  - Nail psoriasis [Not Recovered/Not Resolved]
  - Skin papilloma [None]
  - Discomfort [None]
  - Nail infection [None]
  - Neuropathy peripheral [None]
  - Suicidal ideation [None]
  - Haemorrhage [Not Recovered/Not Resolved]
  - Pyrexia [Not Recovered/Not Resolved]
  - Onychomycosis [None]
  - Food allergy [Not Recovered/Not Resolved]
  - Burning sensation [None]
  - Uveitis [None]
  - Pain of skin [Not Recovered/Not Resolved]
  - Pain [Not Recovered/Not Resolved]
  - Paraesthesia [None]
  - Skin disorder [None]
  - General physical health deterioration [Unknown]
  - Pain [None]
  - Skin exfoliation [None]
  - Psoriatic arthropathy [Not Recovered/Not Resolved]
  - Onychomadesis [None]
  - Psoriasis [None]
  - Unevaluable event [None]
  - Feeding disorder [None]
  - Blood pressure increased [None]
  - Cholelithiasis [None]
  - Retinal tear [None]
  - Psoriatic arthropathy [Not Recovered/Not Resolved]
  - Malaise [None]
  - Rash erythematous [Not Recovered/Not Resolved]
  - Rash [Not Recovered/Not Resolved]
  - Drug intolerance [Not Recovered/Not Resolved]
  - Blood albumin decreased [None]
  - Immune system disorder [None]

NARRATIVE: CASE EVENT DATE: 2016
